FAERS Safety Report 7315521-1 (Version None)
Quarter: 2011Q1

REPORT INFORMATION
  Report Type: 
  Country: None (occurrence: None)
  Receive Date: 20110215
  Receipt Date: 20110208
  Transmission Date: 20110831
  Serious: Yes (Disabling, Other)
  Sender: FDA-Public Use
  Company Number: LTI2011A00027

PATIENT
  Age: 60 Year
  Sex: Female

DRUGS (1)
  1. ACTOS [Suspect]
     Indication: TYPE 2 DIABETES MELLITUS
     Dosage: 30 MG (30 MG,1 IN 1 D) ORAL
     Route: 048
     Dates: start: 20040101, end: 20070101

REACTIONS (3)
  - JOINT DISLOCATION [None]
  - WRIST FRACTURE [None]
  - ULNA FRACTURE [None]
